FAERS Safety Report 6451014-1 (Version None)
Quarter: 2009Q4

REPORT INFORMATION
  Report Type: 
  Country: None (occurrence: None)
  Receive Date: 20091123
  Receipt Date: 20091117
  Transmission Date: 20100525
  Serious: Yes (Hospitalization)
  Sender: FDA-Public Use
  Company Number: B0606641A

PATIENT
  Age: 43 Year
  Sex: Male

DRUGS (6)
  1. KIVEXA [Suspect]
     Indication: HIV INFECTION
     Dosage: 1TAB PER DAY
     Route: 065
  2. WELLVONE [Concomitant]
     Dosage: 10ML PER DAY
  3. REYATAZ [Concomitant]
     Dosage: 1TAB PER DAY
  4. NORVIR [Concomitant]
     Dosage: 1TAB PER DAY
  5. PERFALGAN [Concomitant]
  6. NEXIUM [Concomitant]

REACTIONS (3)
  - ABDOMINAL PAIN [None]
  - HEPATIC NEOPLASM [None]
  - NEOPLASM [None]
